FAERS Safety Report 19645838 (Version 1)
Quarter: 2021Q3

REPORT INFORMATION
  Report Type: Spontaneous
  Country: US (occurrence: US)
  Receive Date: 20210730
  Receipt Date: 20210730
  Transmission Date: 20211014
  Serious: Yes (Hospitalization)
  Sender: FDA-Public Use
  Company Number: None

PATIENT
  Sex: Female

DRUGS (4)
  1. CIMZIA [Suspect]
     Active Substance: CERTOLIZUMAB PEGOL
     Indication: ANKYLOSING SPONDYLITIS
     Route: 058
     Dates: start: 20180126
  2. IBUPROFEN. [Concomitant]
     Active Substance: IBUPROFEN
  3. OXYCODONE [Concomitant]
     Active Substance: OXYCODONE
  4. LABETALOL [Concomitant]
     Active Substance: LABETALOL\LABETALOL HYDROCHLORIDE

REACTIONS (2)
  - Maternal exposure during pregnancy [None]
  - Intentional dose omission [None]
